FAERS Safety Report 24974270 (Version 1)
Quarter: 2025Q1

REPORT INFORMATION
  Report Type: Spontaneous
  Country: US (occurrence: US)
  Receive Date: 20250217
  Receipt Date: 20250217
  Transmission Date: 20250408
  Serious: No
  Sender: ROCHE
  Company Number: US-ROCHE-10000206208

PATIENT
  Sex: Female

DRUGS (10)
  1. ACTEMRA ACTPEN [Suspect]
     Active Substance: TOCILIZUMAB
     Indication: Vitiligo
     Route: 058
  2. ALBUTEROL SU AER 108 [Concomitant]
  3. AMLODIPINE B [Concomitant]
  4. DICLOFENAC E [Concomitant]
  5. FLUTICASONE [Concomitant]
     Active Substance: FLUTICASONE
  6. FUROSEMIDE [Concomitant]
     Active Substance: FUROSEMIDE
  7. IBUPROFEN [Concomitant]
     Active Substance: IBUPROFEN
  8. MOXIFLOXACIN [Concomitant]
     Active Substance: MOXIFLOXACIN
  9. PREDNISOLONE [Concomitant]
     Active Substance: PREDNISOLONE
  10. GABAPENTIN [Concomitant]
     Active Substance: GABAPENTIN

REACTIONS (3)
  - Swelling [Recovered/Resolved]
  - Urticaria [Recovered/Resolved]
  - Off label use [Unknown]
